FAERS Safety Report 9310292 (Version 1)
Quarter: 2013Q2

REPORT INFORMATION
  Report Type: Spontaneous
  Country: ES (occurrence: ES)
  Receive Date: 20130527
  Receipt Date: 20130527
  Transmission Date: 20140414
  Serious: Yes (Death, Hospitalization)
  Sender: FDA-Public Use
  Company Number: PHHY2013ES052454

PATIENT
  Age: 83 Year
  Sex: Female

DRUGS (7)
  1. EXELON [Suspect]
     Indication: DEMENTIA
     Dosage: 2 MG/ML, UNK
     Route: 048
     Dates: start: 20121004, end: 20121019
  2. IBUPROFEN SANDOZ [Suspect]
     Indication: EAR PAIN
     Dosage: 600 MG, TID
     Route: 048
     Dates: start: 20121017, end: 20121019
  3. HYDROCHLOROTHIAZIDE SANDOZ [Suspect]
     Dosage: 12.5 MG, DAILY
     Route: 048
     Dates: start: 20120919, end: 20121019
  4. ENALAPRIL [Suspect]
     Indication: HYPERTENSION
     Dosage: 20 MG, DAILY
     Route: 048
     Dates: start: 20120919, end: 20121019
  5. AXURA [Suspect]
     Indication: DEMENTIA
     Dosage: 5 MG, DAILY
     Route: 048
     Dates: start: 20121017, end: 20121019
  6. OTIX [Concomitant]
     Dosage: UNK UKN, UNK
     Route: 061
     Dates: start: 20121008, end: 20121019
  7. SINTROM [Concomitant]
     Dosage: UNK UKN, UNK
     Route: 048
     Dates: start: 201112, end: 20121019

REACTIONS (1)
  - Pancreatitis acute [Fatal]
